FAERS Safety Report 23452964 (Version 1)
Quarter: 2024Q1

REPORT INFORMATION
  Report Type: Spontaneous
  Country: US (occurrence: US)
  Receive Date: 20240129
  Receipt Date: 20240129
  Transmission Date: 20240410
  Serious: No
  Sender: FDA-Public Use
  Company Number: US-PFIZER INC-202400027018

PATIENT
  Age: 65 Year
  Sex: Female

DRUGS (8)
  1. XELJANZ [Suspect]
     Active Substance: TOFACITINIB CITRATE
     Dosage: 5 MG, 2X/DAY
     Route: 048
     Dates: start: 201405
  2. PREDNISONE [Concomitant]
     Active Substance: PREDNISONE
  3. ADVIL [Concomitant]
     Active Substance: IBUPROFEN
  4. CALCIUM [Concomitant]
     Active Substance: CALCIUM
  5. BIOTIN [Concomitant]
     Active Substance: BIOTIN
  6. HYDROCHLOROTHIAZIDE [Concomitant]
     Active Substance: HYDROCHLOROTHIAZIDE
  7. VITAMINS [Concomitant]
     Active Substance: VITAMINS
  8. ROSUVASTATIN [Concomitant]
     Active Substance: ROSUVASTATIN

REACTIONS (2)
  - Herpes zoster [Recovered/Resolved]
  - Influenza [Recovered/Resolved]

NARRATIVE: CASE EVENT DATE: 20231101
